FAERS Safety Report 9665828 (Version 1)
Quarter: 2013Q4

REPORT INFORMATION
  Report Type: Spontaneous
  Country: JP (occurrence: JP)
  Receive Date: 20131104
  Receipt Date: 20131104
  Transmission Date: 20140711
  Serious: Yes (Other)
  Sender: FDA-Public Use
  Company Number: JP-ASTELLAS-2013JP011996

PATIENT
  Age: 67 Year
  Sex: Male

DRUGS (4)
  1. TACROLIMUS OINTMENT [Suspect]
     Indication: SARCOIDOSIS
     Route: 061
  2. CORTICOSTEROID NOS [Concomitant]
     Indication: SARCOIDOSIS
     Route: 047
  3. CORTICOSTEROID NOS [Concomitant]
     Indication: SARCOIDOSIS
     Dosage: UNK
     Route: 061
  4. TRANILAST [Concomitant]
     Indication: SARCOIDOSIS
     Route: 048

REACTIONS (2)
  - Drug ineffective for unapproved indication [Unknown]
  - Sarcoidosis [Unknown]
